FAERS Safety Report 6507106-1 (Version None)
Quarter: 2009Q4

REPORT INFORMATION
  Report Type: 
  Country: None (occurrence: None)
  Receive Date: 20091221
  Receipt Date: 20091209
  Transmission Date: 20100525
  Serious: Yes (Other)
  Sender: FDA-Public Use
  Company Number: PHHY2009ES52513

PATIENT
  Age: 60 Year
  Sex: Male

DRUGS (1)
  1. MIACALCIN [Suspect]
     Indication: BACK PAIN
     Dosage: UNK
     Route: 051
     Dates: start: 20071026, end: 20090126

REACTIONS (1)
  - ERYTHEMA MULTIFORME [None]
